FAERS Safety Report 4445283-7 (Version None)
Quarter: 2004Q3

REPORT INFORMATION
  Report Type: 
  Country: None (occurrence: None)
  Receive Date: 20040730
  Receipt Date: 20040616
  Transmission Date: 20050211
  Serious: No
  Sender: FDA-Public Use
  Company Number: PHEH2004US06582

PATIENT
  Age: 65 Year
  Sex: Male

DRUGS (6)
  1. GLEEVEC [Suspect]
     Indication: CHRONIC MYELOID LEUKAEMIA
     Dosage: 400 MG,QD,ORAL
     Route: 048
     Dates: start: 20040301
  2. ALTACE [Concomitant]
  3. LIPITOR [Concomitant]
  4. ACETYLSALICYLIC ACID [Concomitant]
  5. PROZAC [Concomitant]
  6. KLONOPIN [Concomitant]

REACTIONS (4)
  - CHEILITIS [None]
  - RASH [None]
  - RASH MACULAR [None]
  - RASH PRURITIC [None]
